FAERS Safety Report 15575991 (Version 1)
Quarter: 2018Q4

REPORT INFORMATION
  Report Type: Spontaneous
  Country: US (occurrence: US)
  Receive Date: 20181101
  Receipt Date: 20181101
  Transmission Date: 20190205
  Serious: No
  Sender: FDA-Public Use
  Company Number: US-LEXICON PHARMACEUTICALS, INC-18-1606-01261

PATIENT
  Sex: Male

DRUGS (9)
  1. VITAMIN D [Concomitant]
     Active Substance: CHOLECALCIFEROL
  2. VITAMIN B12 [Concomitant]
     Active Substance: CYANOCOBALAMIN
  3. TELOTRISTAT ETHYL [Suspect]
     Active Substance: TELOTRISTAT ETHYL
     Indication: CARCINOID SYNDROME
     Route: 048
     Dates: start: 20171220
  4. TAMSULOSIN [Concomitant]
     Active Substance: TAMSULOSIN
  5. TELOTRISTAT ETHYL [Suspect]
     Active Substance: TELOTRISTAT ETHYL
     Route: 048
  6. FINASTERIDE. [Concomitant]
     Active Substance: FINASTERIDE
  7. NADOLOL. [Concomitant]
     Active Substance: NADOLOL
  8. OCTREOTIDE ACETATE. [Concomitant]
     Active Substance: OCTREOTIDE ACETATE
  9. TRIAZOLAM. [Concomitant]
     Active Substance: TRIAZOLAM

REACTIONS (1)
  - Abdominal discomfort [Unknown]
